FAERS Safety Report 6075563-3 (Version None)
Quarter: 2009Q1

REPORT INFORMATION
  Report Type: 
  Country: None (occurrence: None)
  Receive Date: 20090210
  Receipt Date: 20090210
  Transmission Date: 20090719
  Serious: Yes (Other)
  Sender: FDA-Public Use
  Company Number: None

PATIENT
  Age: 60 Year
  Sex: Female
  Weight: 81.6475 kg

DRUGS (2)
  1. OXYBUTYNIN CHLORIDE [Suspect]
     Indication: INCONTINENCE
     Dosage: 1 TABLET DAILY PO
     Route: 048
     Dates: start: 20080813, end: 20081001
  2. OXYBUTYNIN CHLORIDE [Suspect]
     Indication: INCONTINENCE
     Dosage: 1 TABLET DAILY PO
     Route: 048
     Dates: start: 20081002, end: 20081015

REACTIONS (3)
  - DRUG EFFECT DECREASED [None]
  - RASH PRURITIC [None]
  - URTICARIA [None]
